FAERS Safety Report 7679879-6 (Version None)
Quarter: 2011Q3

REPORT INFORMATION
  Report Type: 
  Country: None (occurrence: None)
  Receive Date: 20110812
  Receipt Date: 20110810
  Transmission Date: 20111222
  Serious: Yes (Other)
  Sender: FDA-Public Use
  Company Number: JP-PFIZER INC-2011184040

PATIENT
  Age: 38 Year
  Sex: Male

DRUGS (2)
  1. LYRICA [Suspect]
     Dosage: 300 MG DAILY
     Route: 048
     Dates: start: 20110117, end: 20110701
  2. LYRICA [Suspect]
     Dosage: 150 MG DAILY
     Route: 048
     Dates: start: 20101029, end: 20110116

REACTIONS (3)
  - GENERALISED OEDEMA [None]
  - PLEURAL EFFUSION [None]
  - OEDEMA PERIPHERAL [None]
